FAERS Safety Report 7931269-4 (Version None)
Quarter: 2011Q4

REPORT INFORMATION
  Report Type: 
  Country: None (occurrence: None)
  Receive Date: 20111121
  Receipt Date: 20111114
  Transmission Date: 20120403
  Serious: Yes (Other)
  Sender: FDA-Public Use
  Company Number: CHPA2011US016074

PATIENT
  Sex: Female

DRUGS (1)
  1. 4 WAY SALINE MOISTURIZING MIST [Suspect]
     Indication: NASOPHARYNGITIS
     Dosage: UNK, PRN
     Route: 045

REACTIONS (3)
  - OFF LABEL USE [None]
  - BRONCHITIS [None]
  - LARYNGITIS [None]
